FAERS Safety Report 25728639 (Version 1)
Quarter: 2025Q3

REPORT INFORMATION
  Report Type: Spontaneous
  Country: CN (occurrence: CN)
  Receive Date: 20250826
  Receipt Date: 20250826
  Transmission Date: 20251020
  Serious: Yes (Hospitalization, Other)
  Sender: VERITY PHARMACEUTICALS INC.
  Company Number: CN-VER-202500032

PATIENT
  Age: 73 Year
  Sex: Male

DRUGS (2)
  1. TRIPTORELIN [Suspect]
     Active Substance: TRIPTORELIN
     Indication: Prostate cancer
     Dosage: POWDER AND SOLVENT FOR SUSPENSION FOR INJECTION
     Route: 030
  2. APALUTAMIDE [Suspect]
     Active Substance: APALUTAMIDE
     Indication: Prostate cancer
     Route: 065

REACTIONS (3)
  - Dermatitis exfoliative generalised [Unknown]
  - Off label use [Unknown]
  - Urticaria [Unknown]
